FAERS Safety Report 23349932 (Version 2)
Quarter: 2024Q1

REPORT INFORMATION
  Report Type: Spontaneous
  Country: JP (occurrence: JP)
  Receive Date: 20231229
  Receipt Date: 20240131
  Transmission Date: 20240410
  Serious: Yes (Other)
  Sender: FDA-Public Use
  Company Number: JP-AMGEN-JPNSP2023228592

PATIENT

DRUGS (1)
  1. EVENITY [Suspect]
     Active Substance: ROMOSOZUMAB-AQQG
     Indication: Osteoporosis
     Dosage: 210 MILLIGRAM
     Route: 058

REACTIONS (7)
  - Osteonecrosis of jaw [Unknown]
  - Spinal fracture [Unknown]
  - Femur fracture [Unknown]
  - Fracture [Unknown]
  - Bone density decreased [Unknown]
  - Back pain [Unknown]
  - Tooth extraction [Unknown]
